FAERS Safety Report 12388980 (Version 1)
Quarter: 2016Q2

REPORT INFORMATION
  Report Type: Spontaneous
  Country: US (occurrence: US)
  Receive Date: 20160520
  Receipt Date: 20160520
  Transmission Date: 20160815
  Serious: No
  Sender: FDA-Public Use
  Company Number: US-TEVA-586654USA

PATIENT
  Age: 42 Year
  Sex: Female

DRUGS (15)
  1. METRONIDAZOLE VAGINAL GEL [Suspect]
     Active Substance: METRONIDAZOLE
     Indication: BACTERIAL VAGINOSIS
     Dosage: 75 MILLIGRAM DAILY; 0.75%
     Route: 067
     Dates: start: 201506, end: 201507
  2. AYGESTIN [Concomitant]
     Active Substance: NORETHINDRONE ACETATE
  3. ALBUTEROL. [Concomitant]
     Active Substance: ALBUTEROL
  4. NAPROXEN. [Concomitant]
     Active Substance: NAPROXEN
  5. PERCOCET [Concomitant]
     Active Substance: ACETAMINOPHEN\OXYCODONE HYDROCHLORIDE
  6. WELLBUTRIN [Concomitant]
     Active Substance: BUPROPION HYDROCHLORIDE
  7. LASIX [Concomitant]
     Active Substance: FUROSEMIDE
  8. K-TAB [Concomitant]
     Active Substance: POTASSIUM CHLORIDE
  9. COREG [Concomitant]
     Active Substance: CARVEDILOL
  10. VITAMIN B12 [Concomitant]
     Active Substance: CYANOCOBALAMIN
  11. ROBAXIN [Concomitant]
     Active Substance: METHOCARBAMOL
  12. LEXAPRO [Concomitant]
     Active Substance: ESCITALOPRAM OXALATE
  13. PEPCID [Concomitant]
     Active Substance: FAMOTIDINE
  14. XANAX [Concomitant]
     Active Substance: ALPRAZOLAM
  15. KLONOPIN [Concomitant]
     Active Substance: CLONAZEPAM

REACTIONS (3)
  - Drug ineffective [Recovered/Resolved]
  - Vaginal odour [Recovered/Resolved]
  - Expired product administered [Unknown]

NARRATIVE: CASE EVENT DATE: 201506
